FAERS Safety Report 23969819 (Version 1)
Quarter: 2024Q2

REPORT INFORMATION
  Report Type: Spontaneous
  Country: JP (occurrence: JP)
  Receive Date: 20240613
  Receipt Date: 20240613
  Transmission Date: 20240715
  Serious: Yes (Other)
  Sender: FDA-Public Use
  Company Number: JP-GENMAB-2024-01983

PATIENT
  Age: 7 Decade

DRUGS (4)
  1. EPKINLY [Suspect]
     Active Substance: EPCORITAMAB-BYSP
     Indication: Diffuse large B-cell lymphoma
     Dosage: 0.16 MILLIGRAM, SINGLE
     Route: 065
     Dates: start: 20240514, end: 20240514
  2. EPKINLY [Suspect]
     Active Substance: EPCORITAMAB-BYSP
     Dosage: UNK, SECOND ADMINISTRATION OF EPKINLY
     Route: 065
     Dates: start: 202405, end: 202405
  3. EPKINLY [Suspect]
     Active Substance: EPCORITAMAB-BYSP
     Dosage: 48 MILLIGRAM
     Route: 065
     Dates: start: 20240528, end: 20240528
  4. UNSPECIFIED INGREDIENT [Concomitant]
     Active Substance: UNSPECIFIED INGREDIENT
     Indication: Spinal instability
     Dosage: UNK

REACTIONS (3)
  - Diffuse large B-cell lymphoma [Not Recovered/Not Resolved]
  - C-reactive protein increased [Recovered/Resolved]
  - Pyrexia [Recovered/Resolved]

NARRATIVE: CASE EVENT DATE: 20240522
